FAERS Safety Report 8479661-6 (Version None)
Quarter: 2012Q2

REPORT INFORMATION
  Report Type: 
  Country: None (occurrence: None)
  Receive Date: 20120629
  Receipt Date: 20120618
  Transmission Date: 20120825
  Serious: Yes (Other)
  Sender: FDA-Public Use
  Company Number: JP-VERTEX PHARMACEUTICALS INC.-AE-2012-008813

PATIENT
  Age: 75 Year
  Sex: Male

DRUGS (9)
  1. RIBAVIRIN [Concomitant]
     Route: 048
     Dates: start: 20120614
  2. URSO 250 [Concomitant]
     Route: 048
  3. TELAVIC (TELAPREVIR) [Suspect]
     Indication: HEPATITIS C
     Route: 048
     Dates: start: 20120606, end: 20120608
  4. TELAVIC (TELAPREVIR) [Suspect]
     Route: 048
     Dates: start: 20120614
  5. LANSOPRAZOLE [Concomitant]
     Route: 048
  6. RIBAVIRIN [Concomitant]
     Indication: HEPATITIS C
     Route: 048
     Dates: start: 20120608, end: 20120613
  7. PEGINTERFERON ALFA-2B [Concomitant]
     Indication: HEPATITIS C
     Route: 058
     Dates: start: 20120608
  8. PENTASA [Concomitant]
     Route: 048
  9. LENDORMIN [Concomitant]
     Route: 048

REACTIONS (1)
  - RENAL IMPAIRMENT [None]
